FAERS Safety Report 9880300 (Version 2)
Quarter: 2014Q1

REPORT INFORMATION
  Report Type: Other
  Country: GB (occurrence: GB)
  Receive Date: 20140207
  Receipt Date: 20140207
  Transmission Date: 20141002
  Serious: Yes (Other)
  Sender: FDA-Public Use
  Company Number: GB-LUPIN PHARMACEUTICALS INC.-2013-01321

PATIENT
  Age: 49 Year
  Sex: Male

DRUGS (12)
  1. QUETIAPINE [Suspect]
     Indication: INSOMNIA
     Route: 048
     Dates: start: 201209
  2. QUETIAPINE [Suspect]
     Route: 048
  3. QUETIAPINE [Suspect]
     Route: 048
  4. QUETIAPINE [Suspect]
     Route: 048
  5. QUETIAPINE [Suspect]
     Route: 048
     Dates: end: 201302
  6. QUETIAPINE (ACCORD BRAND) [Suspect]
     Indication: INSOMNIA
     Route: 048
     Dates: start: 201209
  7. QUETIAPINE (ACCORD BRAND) [Suspect]
     Route: 048
  8. QUETIAPINE (ACCORD BRAND) [Suspect]
     Route: 048
  9. QUETIAPINE (ACCORD BRAND) [Suspect]
     Route: 048
  10. QUETIAPINE (ACCORD BRAND) [Suspect]
     Route: 048
     Dates: end: 201302
  11. SODIUM BICARBONATE [Concomitant]
     Indication: PRODUCT USED FOR UNKNOWN INDICATION
     Route: 065
     Dates: start: 20121113, end: 20121208
  12. ZOPICLONE [Concomitant]
     Indication: PRODUCT USED FOR UNKNOWN INDICATION
     Route: 065

REACTIONS (12)
  - Disinhibition [Recovered/Resolved]
  - Sexually inappropriate behaviour [Recovered/Resolved]
  - Hangover [Unknown]
  - Dizziness [Unknown]
  - Ingrowing nail [Recovered/Resolved]
  - Libido increased [Unknown]
  - Visual acuity reduced [Unknown]
  - Deafness unilateral [Unknown]
  - Anger [Unknown]
  - Foreign body [Unknown]
  - Tongue biting [Unknown]
  - Off label use [Unknown]
